APPROVED DRUG PRODUCT: DESMOPRESSIN ACETATE
Active Ingredient: DESMOPRESSIN ACETATE
Strength: 0.004MG/ML
Dosage Form/Route: INJECTABLE;INJECTION
Application: A091280 | Product #001
Applicant: SUN PHARMACEUTICAL INDUSTRIES LTD
Approved: Jan 25, 2013 | RLD: No | RS: No | Type: DISCN